FAERS Safety Report 24733926 (Version 1)
Quarter: 2024Q4

REPORT INFORMATION
  Report Type: Other
  Country: FR (occurrence: FR)
  Receive Date: 20241214
  Receipt Date: 20241214
  Transmission Date: 20250115
  Serious: Yes (Life-Threatening)
  Sender: ZYDUS PHARM
  Company Number: None

PATIENT

DRUGS (3)
  1. ACETAMINOPHEN [Suspect]
     Active Substance: ACETAMINOPHEN
     Indication: Poisoning deliberate
     Dosage: 16 GRAM, 1 TOTAL
     Route: 048
     Dates: start: 20241105, end: 20241105
  2. VALPROATE SODIUM [Suspect]
     Active Substance: VALPROATE SODIUM
     Indication: Poisoning deliberate
     Dosage: 12 DOSAGE FORM, 1 TOTAL
     Route: 048
     Dates: start: 20241105, end: 20241105
  3. OXAZEPAM [Suspect]
     Active Substance: OXAZEPAM
     Indication: Poisoning deliberate
     Dosage: 20 GRAM, 1 TOTAL
     Route: 048
     Dates: start: 20241105, end: 20241105

REACTIONS (5)
  - Coma [Recovered/Resolved]
  - Hyperlactacidaemia [Recovered/Resolved]
  - Hypoxia [Recovered/Resolved]
  - Hypotension [Recovered/Resolved]
  - Vomiting [Recovered/Resolved]

NARRATIVE: CASE EVENT DATE: 20241105
